FAERS Safety Report 6408403-0 (Version None)
Quarter: 2009Q4

REPORT INFORMATION
  Report Type: 
  Country: None (occurrence: None)
  Receive Date: 20091021
  Receipt Date: 20091013
  Transmission Date: 20100525
  Serious: Yes (Hospitalization, Other)
  Sender: FDA-Public Use
  Company Number: JP-JNJFOC-20090803028

PATIENT
  Sex: Male
  Weight: 48 kg

DRUGS (11)
  1. RISPERDAL CONSTA [Suspect]
     Indication: SCHIZOPHRENIA
     Route: 030
  2. RISPERDAL [Suspect]
     Indication: SCHIZOPHRENIA
     Route: 048
  3. FLUDECASIN [Concomitant]
     Indication: SCHIZOPHRENIA
     Route: 030
  4. HALOMONTH [Concomitant]
     Indication: SCHIZOPHRENIA
     Route: 030
  5. LINTON [Concomitant]
     Indication: SCHIZOPHRENIA
     Route: 048
  6. AKINETON [Concomitant]
     Indication: SCHIZOPHRENIA
     Route: 048
  7. ROHYPNOL [Concomitant]
     Indication: SCHIZOPHRENIA
     Route: 048
  8. THYRADIN S [Concomitant]
     Indication: HYPOTHYROIDISM
  9. ZETIA [Concomitant]
     Indication: HYPERLIPIDAEMIA
     Route: 048
  10. SINLESTAL [Concomitant]
     Indication: HYPERLIPIDAEMIA
     Route: 048
  11. BEZAFIBRATE [Concomitant]
     Indication: HYPERLIPIDAEMIA
     Route: 048

REACTIONS (5)
  - BLOOD CREATINE PHOSPHOKINASE INCREASED [None]
  - C-REACTIVE PROTEIN INCREASED [None]
  - DIZZINESS [None]
  - HYPERHIDROSIS [None]
  - PYREXIA [None]
